FAERS Safety Report 17447580 (Version 1)
Quarter: 2020Q1

REPORT INFORMATION
  Report Type: Report from Study
  Country: US (occurrence: US)
  Receive Date: 20200221
  Receipt Date: 20200221
  Transmission Date: 20200409
  Serious: Yes (Hospitalization, Other)
  Sender: FDA-Public Use
  Company Number: US-GILEAD-2020-0447688

PATIENT
  Age: 38 Year
  Sex: Male

DRUGS (6)
  1. UPTRAVI [Concomitant]
     Active Substance: SELEXIPAG
  2. TREPROSTINIL. [Concomitant]
     Active Substance: TREPROSTINIL
  3. COUMADIN [Concomitant]
     Active Substance: WARFARIN SODIUM
  4. ADEMPAS [Concomitant]
     Active Substance: RIOCIGUAT
     Dosage: 2.5 MG, TID
  5. AMBRISENTAN [Suspect]
     Active Substance: AMBRISENTAN
     Indication: PRODUCT USED FOR UNKNOWN INDICATION
     Dosage: 10 MG, QD
     Route: 048
     Dates: start: 20191010
  6. TADALAFIL. [Concomitant]
     Active Substance: TADALAFIL

REACTIONS (7)
  - Pneumonia [Unknown]
  - Nausea [Recovered/Resolved]
  - Unevaluable event [Unknown]
  - Dyspepsia [Unknown]
  - Flushing [Unknown]
  - Headache [Recovered/Resolved]
  - Back pain [Recovered/Resolved]
